FAERS Safety Report 6249224-1 (Version None)
Quarter: 2009Q2

REPORT INFORMATION
  Report Type: 
  Country: None (occurrence: None)
  Receive Date: 20090629
  Receipt Date: 20090618
  Transmission Date: 20091009
  Serious: Yes (Hospitalization)
  Sender: FDA-Public Use
  Company Number: JP-PFIZER INC-2009231938

PATIENT
  Age: 82 Year

DRUGS (1)
  1. AMLODIPINE [Suspect]
     Dosage: UNK

REACTIONS (1)
  - PNEUMONITIS [None]
